FAERS Safety Report 9175982 (Version 1)
Quarter: 2013Q1

REPORT INFORMATION
  Report Type: Spontaneous
  Country: US (occurrence: US)
  Receive Date: 20130320
  Receipt Date: 20130320
  Transmission Date: 20140127
  Serious: No
  Sender: FDA-Public Use
  Company Number: US-009507513-1303USA009172

PATIENT
  Age: 25 Year
  Sex: Male

DRUGS (4)
  1. SINGULAIR [Suspect]
     Indication: ASTHMA
     Route: 048
  2. PREDNISONE [Concomitant]
     Route: 048
  3. PROAIR (ALBUTEROL SULFATE) [Concomitant]
  4. SYMBICORT [Concomitant]

REACTIONS (1)
  - Drug hypersensitivity [Unknown]
